FAERS Safety Report 15764960 (Version 2)
Quarter: 2019Q4

REPORT INFORMATION
  Report Type: Report from Study
  Country: CA (occurrence: CA)
  Receive Date: 20181227
  Receipt Date: 20191004
  Transmission Date: 20200122
  Serious: Yes (Hospitalization, Other)
  Sender: FDA-Public Use
  Company Number: CA-SA-2018SA339556

PATIENT
  Age: 16 Year
  Sex: Female

DRUGS (17)
  1. RUPATADINE FUMARATE [Concomitant]
     Active Substance: RUPATADINE FUMARATE
     Indication: PRODUCT USED FOR UNKNOWN INDICATION
     Dosage: UNK UNK, QD
     Route: 048
     Dates: start: 20170818
  2. XOLAIR [Suspect]
     Active Substance: OMALIZUMAB
     Dosage: 300 MG
     Route: 058
  3. ASPIRIN [ACETYLSALICYLIC ACID] [Concomitant]
     Active Substance: ASPIRIN
     Indication: PRODUCT USED FOR UNKNOWN INDICATION
     Dosage: UNK
  4. PREDNISONE. [Concomitant]
     Active Substance: PREDNISONE
     Indication: PRODUCT USED FOR UNKNOWN INDICATION
     Dosage: 8 DF
     Route: 048
     Dates: start: 20170818
  5. RANITIDINE. [Suspect]
     Active Substance: RANITIDINE
     Indication: URTICARIA
  6. XOLAIR [Suspect]
     Active Substance: OMALIZUMAB
     Dosage: UNK
     Route: 058
  7. RANITIDINE. [Suspect]
     Active Substance: RANITIDINE
     Indication: PHARYNGEAL SWELLING
     Dosage: 150 MG, BID
     Route: 048
  8. RANITIDINE. [Suspect]
     Active Substance: RANITIDINE
     Indication: ANAPHYLACTIC REACTION
  9. RANITIDINE. [Suspect]
     Active Substance: RANITIDINE
     Indication: HYPERSENSITIVITY
     Dosage: 150 UNK
     Route: 048
     Dates: start: 201802
  10. ALLEGRA [Concomitant]
     Active Substance: FEXOFENADINE HYDROCHLORIDE
     Dosage: UNK UNK, QD
     Route: 048
  11. SINGULAIR [Concomitant]
     Active Substance: MONTELUKAST SODIUM
     Indication: PRODUCT USED FOR UNKNOWN INDICATION
     Dosage: 1 DF, QD
     Route: 048
  12. SINGULAIR [Concomitant]
     Active Substance: MONTELUKAST SODIUM
     Dosage: 10 MG
     Route: 048
     Dates: start: 20170830, end: 201802
  13. XOLAIR [Suspect]
     Active Substance: OMALIZUMAB
     Dosage: 300 MG
     Route: 058
  14. RANITIDINE. [Suspect]
     Active Substance: RANITIDINE
     Indication: DYSPHONIA
  15. XOLAIR [Suspect]
     Active Substance: OMALIZUMAB
     Indication: CHRONIC SPONTANEOUS URTICARIA
     Dosage: 300 MG
     Route: 058
     Dates: start: 20181031
  16. XOLAIR [Suspect]
     Active Substance: OMALIZUMAB
     Dosage: POWDER FOR SOLUTION, 300 MG
     Route: 058
  17. CLARITIN [CLARITHROMYCIN] [Concomitant]
     Active Substance: CLARITHROMYCIN
     Dosage: UNK UNK, QD
     Route: 048

REACTIONS (23)
  - Urticaria [Recovered/Resolved]
  - Hypersensitivity [Recovered/Resolved]
  - Vomiting [Recovering/Resolving]
  - Chronic spontaneous urticaria [Recovered/Resolved]
  - Concussion [Recovering/Resolving]
  - Anaphylactic reaction [Recovered/Resolved]
  - Sexually transmitted disease [Unknown]
  - Vision blurred [Recovering/Resolving]
  - Head injury [Unknown]
  - Pharyngeal swelling [Recovered/Resolved]
  - Swollen tongue [Recovered/Resolved]
  - Bronchitis [Unknown]
  - Inappropriate schedule of product administration [Unknown]
  - Pain [Unknown]
  - Swelling face [Recovered/Resolved]
  - Dysphonia [Recovered/Resolved]
  - Back injury [Unknown]
  - Pharyngeal oedema [Recovered/Resolved]
  - Chronic spontaneous urticaria [Unknown]
  - Neck injury [Unknown]
  - Road traffic accident [Unknown]
  - Urticaria [Recovered/Resolved]
  - Malaise [Unknown]

NARRATIVE: CASE EVENT DATE: 2017
